FAERS Safety Report 18607328 (Version 1)
Quarter: 2020Q4

REPORT INFORMATION
  Report Type: Report from Study
  Country: CZ (occurrence: CZ)
  Receive Date: 20201211
  Receipt Date: 20201211
  Transmission Date: 20210114
  Serious: Yes (Death, Hospitalization)
  Sender: FDA-Public Use
  Company Number: CZ-OTSUKA-2020_024225AA

PATIENT
  Weight: 74 kg

DRUGS (8)
  1. ASTX727 [Suspect]
     Active Substance: CEDAZURIDINE\DECITABINE
     Indication: ACUTE MYELOID LEUKAEMIA
     Dosage: 135 MG (100 MG CEDAZURIDINE AND 35 MG DECITABINE), QD FOR DAYS 1 TO 5 OF A 28 DAYS CYCLE
     Route: 065
     Dates: start: 20200914
  2. CALCICHEW [Concomitant]
     Active Substance: CALCIUM CARBONATE
     Indication: OSTEOPOROSIS
     Dosage: UNK
     Route: 048
     Dates: start: 20160115
  3. LORADUR [Concomitant]
     Active Substance: AMILORIDE HYDROCHLORIDE\HYDROCHLOROTHIAZIDE
     Indication: HYPERTENSION
     Dosage: UNK
     Route: 048
     Dates: start: 20040115, end: 20201007
  4. PROPANORM [Concomitant]
     Active Substance: PROPAFENONE
     Indication: ATRIAL FIBRILLATION
     Dosage: UNK
     Route: 048
     Dates: start: 20170115
  5. LYRICA [Concomitant]
     Active Substance: PREGABALIN
     Indication: RADICULOPATHY
     Dosage: UNK
     Route: 048
     Dates: start: 20190115
  6. VIGANTOL (COLECALCIFEROL) [Concomitant]
     Active Substance: CHOLECALCIFEROL
     Indication: OSTEOPOROSIS
     Dosage: UNK
     Route: 048
     Dates: start: 20160115
  7. RISEDRONAT [Concomitant]
     Active Substance: RISEDRONATE SODIUM
     Indication: OSTEOPOROSIS
     Dosage: UNK
     Route: 048
     Dates: start: 20040115
  8. DECITABINE. [Suspect]
     Active Substance: DECITABINE
     Indication: ACUTE MYELOID LEUKAEMIA
     Dosage: UNK
     Route: 065
     Dates: start: 202010

REACTIONS (1)
  - Pneumonia [Fatal]

NARRATIVE: CASE EVENT DATE: 20201005
